FAERS Safety Report 11779873 (Version 1)
Quarter: 2015Q4

REPORT INFORMATION
  Report Type: Spontaneous
  Country: US (occurrence: US)
  Receive Date: 20151125
  Receipt Date: 20151125
  Transmission Date: 20160304
  Serious: No
  Sender: FDA-Public Use
  Company Number: US-TAKEDA-2015TUS016849

PATIENT
  Age: 66 Year
  Sex: Female
  Weight: 68.27 kg

DRUGS (5)
  1. TRAMADOL. [Suspect]
     Active Substance: TRAMADOL
     Indication: ARTHRALGIA
     Dosage: UNK
     Route: 065
     Dates: start: 20151116
  2. COLCRYS [Suspect]
     Active Substance: COLCHICINE
     Indication: GOUT
     Dosage: 0.6 MG, TID
     Route: 048
     Dates: start: 20151116, end: 20151116
  3. COLCRYS [Suspect]
     Active Substance: COLCHICINE
     Dosage: 0.6 MG, QD
     Route: 048
     Dates: start: 20150917
  4. METORMIN [Concomitant]
     Active Substance: METFORMIN HYDROCHLORIDE
     Indication: GLUCOSE TOLERANCE IMPAIRED
     Dosage: UNK
  5. GLIPIZIDE. [Concomitant]
     Active Substance: GLIPIZIDE
     Indication: GLUCOSE TOLERANCE IMPAIRED
     Dosage: UNK

REACTIONS (2)
  - Nausea [Not Recovered/Not Resolved]
  - Fatigue [Not Recovered/Not Resolved]

NARRATIVE: CASE EVENT DATE: 20151116
